FAERS Safety Report 8338654-X (Version None)
Quarter: 2012Q2

REPORT INFORMATION
  Report Type: 
  Country: None (occurrence: None)
  Receive Date: 20120504
  Receipt Date: 20120427
  Transmission Date: 20120825
  Serious: Yes (Hospitalization, Other)
  Sender: FDA-Public Use
  Company Number: CA-ABBOTT-12P-028-0919332-00

PATIENT
  Sex: Male

DRUGS (7)
  1. LUPRON DEPOT [Suspect]
     Dosage: FEBRUARY DOSE
     Route: 030
  2. DIGOXIN [Concomitant]
     Indication: PRODUCT USED FOR UNKNOWN INDICATION
  3. LUPRON DEPOT [Suspect]
     Indication: PROSTATE CANCER
     Route: 030
     Dates: start: 20111124
  4. FUROSEMIDE [Concomitant]
     Indication: PRODUCT USED FOR UNKNOWN INDICATION
  5. RAMIPRIL [Concomitant]
     Indication: PRODUCT USED FOR UNKNOWN INDICATION
  6. WARFARIN SODIUM [Concomitant]
     Indication: PRODUCT USED FOR UNKNOWN INDICATION
  7. UNKNOWN OTHER INVESTIGATIONAL DRUG [Concomitant]
     Indication: PRODUCT USED FOR UNKNOWN INDICATION

REACTIONS (22)
  - CARDIAC FAILURE CONGESTIVE [None]
  - DYSPNOEA [None]
  - PULMONARY EMBOLISM [None]
  - OEDEMA [None]
  - HYDRONEPHROSIS [None]
  - ATRIAL FIBRILLATION [None]
  - TACHYPNOEA [None]
  - PROSTATIC SPECIFIC ANTIGEN INCREASED [None]
  - GENERAL PHYSICAL HEALTH DETERIORATION [None]
  - BUNDLE BRANCH BLOCK LEFT [None]
  - METASTASES TO BONE [None]
  - DYSPNOEA EXERTIONAL [None]
  - RALES [None]
  - CREPITATIONS [None]
  - CARDIOMYOPATHY [None]
  - CARDIOMEGALY [None]
  - PROSTATIC OBSTRUCTION [None]
  - OEDEMA PERIPHERAL [None]
  - FATIGUE [None]
  - FLUSHING [None]
  - HEART RATE IRREGULAR [None]
  - KYPHOSIS [None]
